FAERS Safety Report 12444257 (Version 3)
Quarter: 2018Q2

REPORT INFORMATION
  Report Type: Spontaneous
  Country: US (occurrence: US)
  Receive Date: 20160607
  Receipt Date: 20180515
  Transmission Date: 20180711
  Serious: No
  Sender: FDA-Public Use
  Company Number: US-SA-2016SA091263

PATIENT
  Age: 87 Year
  Sex: Female

DRUGS (7)
  1. SOLOSTAR [Concomitant]
     Active Substance: DEVICE
     Dates: start: 201603
  2. NOVOLOG [Concomitant]
     Active Substance: INSULIN ASPART
     Dosage: DOSE:9 UNIT(S)
     Route: 065
  3. TOUJEO [Suspect]
     Active Substance: INSULIN GLARGINE
     Indication: TYPE 1 DIABETES MELLITUS
     Dosage: DOSE:30 UNIT(S)
     Route: 065
     Dates: start: 2016
  4. LANTUS [Concomitant]
     Active Substance: INSULIN GLARGINE
     Dosage: 19 UNITS IN THE MORNING AND 6 UNITS AT NIGHT
  5. NOVOLOG [Concomitant]
     Active Substance: INSULIN ASPART
     Route: 065
  6. TOUJEO [Suspect]
     Active Substance: INSULIN GLARGINE
     Indication: TYPE 1 DIABETES MELLITUS
     Dosage: DOSE: 22 -26UNITS
     Route: 065
     Dates: start: 201603
  7. HUMALOG [Concomitant]
     Active Substance: INSULIN LISPRO
     Dosage: 25-30 UNITS A DAY

REACTIONS (1)
  - Blood glucose fluctuation [Unknown]
